FAERS Safety Report 7603115-X (Version None)
Quarter: 2011Q3

REPORT INFORMATION
  Report Type: 
  Country: None (occurrence: None)
  Receive Date: 20110712
  Receipt Date: 20110701
  Transmission Date: 20111222
  Serious: Yes (Hospitalization)
  Sender: FDA-Public Use
  Company Number: DK-NOVOPROD-329088

PATIENT
  Age: 85 Year
  Sex: Male
  Weight: 95 kg

DRUGS (6)
  1. PANTOPRAZOL                        /01263202/ [Concomitant]
     Dosage: 20 MG, QD
     Dates: start: 20050101
  2. AMLODIPINE BESYLATE [Concomitant]
     Dosage: 10 MG, QD
     Dates: start: 19960101
  3. HJERTEMAGNYL                       /00228701/ [Concomitant]
     Dosage: 75 MG, QD
     Dates: start: 19960101
  4. INSULATARD [Suspect]
     Indication: TYPE 2 DIABETES MELLITUS
     Dosage: 32 UNITS IN THE EVENING
     Route: 065
     Dates: start: 20060501, end: 20090401
  5. INSULATARD [Suspect]
     Dosage: 35 UNITS IN THE MORNING AND 35 UNITS IN THE EVENING
     Route: 065
     Dates: start: 20100906, end: 20110511
  6. RAMIPRIL [Concomitant]
     Dosage: 5 MG, QD
     Dates: start: 19960101

REACTIONS (3)
  - TREATMENT NONCOMPLIANCE [None]
  - DRUG INEFFECTIVE [None]
  - PULMONARY EMBOLISM [None]
